FAERS Safety Report 23566079 (Version 1)
Quarter: 2024Q1

REPORT INFORMATION
  Report Type: Spontaneous
  Country: US (occurrence: US)
  Receive Date: 20240226
  Receipt Date: 20240226
  Transmission Date: 20240410
  Serious: No
  Sender: FDA-Public Use
  Company Number: US-GE HEALTHCARE-2024CSU000759

PATIENT
  Sex: Female

DRUGS (2)
  1. CLARISCAN [Suspect]
     Active Substance: GADOTERATE MEGLUMINE
     Indication: Magnetic resonance imaging
     Dosage: UNK UNK, TOTAL
     Route: 065
     Dates: start: 20230530, end: 20230530
  2. CLARISCAN [Suspect]
     Active Substance: GADOTERATE MEGLUMINE
     Dosage: UNK UNK, TOTAL
     Route: 065
     Dates: start: 20230531, end: 20230531

REACTIONS (6)
  - Insomnia [Unknown]
  - Flank pain [Unknown]
  - Retching [Unknown]
  - Nausea [Unknown]
  - Vomiting [Unknown]
  - Fatigue [Unknown]

NARRATIVE: CASE EVENT DATE: 20240123
